FAERS Safety Report 9855132 (Version 3)
Quarter: 2014Q1

REPORT INFORMATION
  Report Type: Report from Study
  Country: FR (occurrence: FR)
  Receive Date: 20140130
  Receipt Date: 20140210
  Transmission Date: 20141002
  Serious: Yes (Hospitalization)
  Sender: FDA-Public Use
  Company Number: FR-ROCHE-1336739

PATIENT
  Sex: Male

DRUGS (4)
  1. RITUXIMAB [Suspect]
     Indication: RHEUMATOID ARTHRITIS
     Dosage: LAST RITUXIMAB DOSE ADMINISTERED ON 26/JAN/2009.
     Route: 041
     Dates: start: 20090112
  2. METHOTREXATE [Concomitant]
  3. SIMVASTATINE [Concomitant]
  4. CORTANCYL [Concomitant]

REACTIONS (6)
  - Arteritis [Recovered/Resolved]
  - Fat embolism [Recovered/Resolved]
  - Peripheral arterial occlusive disease [Recovered/Resolved]
  - Gastroenteritis [Recovered/Resolved]
  - Onychomycosis [Not Recovered/Not Resolved]
  - Gamma-glutamyltransferase increased [Not Recovered/Not Resolved]
